FAERS Safety Report 7104891-5 (Version None)
Quarter: 2010Q4

REPORT INFORMATION
  Report Type: 
  Country: None (occurrence: None)
  Receive Date: 20101110
  Receipt Date: 20101026
  Transmission Date: 20110411
  Serious: Yes (Hospitalization)
  Sender: FDA-Public Use
  Company Number: UTC-001838

PATIENT
  Age: 73 Year
  Sex: Male
  Weight: 203 kg

DRUGS (2)
  1. REMODULIN [Suspect]
     Indication: PULMONARY ARTERIAL HYPERTENSION
     Dosage: 69.12 UG/KG (0.048 UG/KG, 1 IN 1 MIN), SUBCUTANEOUS
     Route: 058
     Dates: start: 20100916
  2. REVATIO [Concomitant]

REACTIONS (1)
  - ABDOMINAL MASS [None]
